FAERS Safety Report 15677645 (Version 3)
Quarter: 2019Q1

REPORT INFORMATION
  Report Type: Report from Study
  Country: GB (occurrence: GB)
  Receive Date: 20181130
  Receipt Date: 20190222
  Transmission Date: 20190417
  Serious: Yes (Hospitalization)
  Sender: FDA-Public Use
  Company Number: PHHY2018GB139184

PATIENT
  Age: 71 Year
  Sex: Female

DRUGS (1)
  1. SANDOSTATIN LAR DEPOT [Suspect]
     Active Substance: OCTREOTIDE ACETATE
     Indication: NEUROENDOCRINE TUMOUR
     Dosage: 30 MG, QMO
     Route: 030
     Dates: start: 20180926

REACTIONS (9)
  - Flatulence [Unknown]
  - Alanine aminotransferase increased [Unknown]
  - Dyspnoea [Unknown]
  - Asthenia [Unknown]
  - Musculoskeletal pain [Unknown]
  - Malaise [Unknown]
  - Nasopharyngitis [Unknown]
  - Headache [Recovering/Resolving]
  - Steatorrhoea [Unknown]

NARRATIVE: CASE EVENT DATE: 20181114
